FAERS Safety Report 14624660 (Version 1)
Quarter: 2018Q1

REPORT INFORMATION
  Report Type: Spontaneous
  Country: US (occurrence: US)
  Receive Date: 20180311
  Receipt Date: 20180311
  Transmission Date: 20180509
  Serious: Yes (Life-Threatening)
  Sender: FDA-Public Use
  Company Number: None

PATIENT
  Age: 65 Year
  Sex: Male
  Weight: 62 kg

DRUGS (1)
  1. SULFAMETHOXAZOLE/TRIMETHOPRIM [Suspect]
     Active Substance: SULFAMETHOXAZOLE\TRIMETHOPRIM
     Indication: EMPYEMA
     Dates: start: 20170926, end: 20171011

REACTIONS (2)
  - Blood creatinine increased [None]
  - Renal tubular acidosis [None]

NARRATIVE: CASE EVENT DATE: 20171011
